FAERS Safety Report 19562771 (Version 1)
Quarter: 2021Q3

REPORT INFORMATION
  Report Type: Report from Study
  Country: GB (occurrence: GB)
  Receive Date: 20210715
  Receipt Date: 20210715
  Transmission Date: 20211014
  Serious: Yes (Death, Other)
  Sender: FDA-Public Use
  Company Number: NVSC2021GB156610

PATIENT
  Age: 64 Year
  Sex: Male

DRUGS (2)
  1. LUTATHERA [Suspect]
     Active Substance: LUTETIUM OXODOTREOTIDE LU-177
     Indication: PANCREATIC NEUROENDOCRINE TUMOUR
     Dosage: APPROX 7.4 GBQ  (1ST CYCLE)
     Route: 042
     Dates: start: 201901
  2. LUTATHERA [Suspect]
     Active Substance: LUTETIUM OXODOTREOTIDE LU-177
     Dosage: 3.7 GBQ (2ND CYCLE)
     Route: 042
     Dates: start: 201904

REACTIONS (12)
  - Metastases to liver [Fatal]
  - Hepatic pain [Unknown]
  - Bone pain [Unknown]
  - Fatigue [Unknown]
  - Platelet count decreased [Unknown]
  - Liver function test decreased [Fatal]
  - Performance status decreased [Fatal]
  - Pancreatic neuroendocrine tumour [Not Recovered/Not Resolved]
  - Decreased appetite [Unknown]
  - Malignant neoplasm progression [Not Recovered/Not Resolved]
  - Ascites [Fatal]
  - Myalgia [Unknown]
